FAERS Safety Report 11601170 (Version 1)
Quarter: 2015Q4

REPORT INFORMATION
  Report Type: Spontaneous
  Country: US (occurrence: US)
  Receive Date: 20151006
  Receipt Date: 20151006
  Transmission Date: 20160304
  Serious: No
  Sender: FDA-Public Use
  Company Number: US-AMGEN-USASP2015011450

PATIENT
  Age: 61 Year
  Sex: Female

DRUGS (6)
  1. ACTONEL [Concomitant]
     Active Substance: RISEDRONATE SODIUM
  2. RECLAST [Concomitant]
     Active Substance: ZOLEDRONIC ACID
  3. FORTEO [Concomitant]
     Active Substance: TERIPARATIDE
  4. FOSAMAX [Concomitant]
     Active Substance: ALENDRONATE SODIUM
  5. BONIVA [Concomitant]
     Active Substance: IBANDRONATE SODIUM
  6. PROLIA [Suspect]
     Active Substance: DENOSUMAB
     Indication: PRODUCT USED FOR UNKNOWN INDICATION
     Dosage: 60 MG, UNK
     Route: 065

REACTIONS (3)
  - Bone pain [Unknown]
  - Pyrexia [Unknown]
  - Abdominal discomfort [Unknown]
